FAERS Safety Report 5246131-8 (Version None)
Quarter: 2007Q1

REPORT INFORMATION
  Report Type: 
  Country: None (occurrence: None)
  Receive Date: 20070220
  Receipt Date: 20070206
  Transmission Date: 20070707
  Serious: Yes (Hospitalization)
  Sender: FDA-Public Use
  Company Number: 430002K07DEU

PATIENT
  Sex: Female

DRUGS (1)
  1. NOVANTRONE [Suspect]

REACTIONS (2)
  - ACCIDENTAL EXPOSURE [None]
  - ATRIOVENTRICULAR BLOCK [None]
